FAERS Safety Report 26206629 (Version 1)
Quarter: 2025Q4

REPORT INFORMATION
  Report Type: Spontaneous
  Country: US (occurrence: US)
  Receive Date: 20251229
  Receipt Date: 20251229
  Transmission Date: 20260117
  Serious: Yes (Other)
  Sender: PHARMAESSENTIA
  Company Number: US-PHARMAESSENTIA CORPORATION-US-2025-PEC-010086

PATIENT

DRUGS (7)
  1. BESREMI [Suspect]
     Active Substance: ROPEGINTERFERON ALFA-2B-NJFT
     Indication: Polycythaemia vera
     Dosage: 300 MCG, Q2W
     Route: 058
     Dates: start: 20240922
  2. BESREMI [Suspect]
     Active Substance: ROPEGINTERFERON ALFA-2B-NJFT
  3. BESREMI [Suspect]
     Active Substance: ROPEGINTERFERON ALFA-2B-NJFT
  4. BESREMI [Suspect]
     Active Substance: ROPEGINTERFERON ALFA-2B-NJFT
  5. BESREMI [Suspect]
     Active Substance: ROPEGINTERFERON ALFA-2B-NJFT
  6. BESREMI [Suspect]
     Active Substance: ROPEGINTERFERON ALFA-2B-NJFT
  7. BESREMI [Suspect]
     Active Substance: ROPEGINTERFERON ALFA-2B-NJFT

REACTIONS (1)
  - Incorrect dose administered [Unknown]
